FAERS Safety Report 15261183 (Version 4)
Quarter: 2018Q4

REPORT INFORMATION
  Report Type: Spontaneous
  Country: US (occurrence: US)
  Receive Date: 20180809
  Receipt Date: 20181116
  Transmission Date: 20190204
  Serious: Yes (Hospitalization, Other)
  Sender: FDA-Public Use
  Company Number: US-BAYER-2018-145391

PATIENT
  Age: 57 Year
  Sex: Female
  Weight: 70.29 kg

DRUGS (3)
  1. AMBRISENTAN [Suspect]
     Active Substance: AMBRISENTAN
     Indication: PULMONARY HYPERTENSION
     Dosage: 5 MG, QD
     Route: 065
     Dates: start: 20171212
  2. AMBRISENTAN [Suspect]
     Active Substance: AMBRISENTAN
     Indication: SLEEP APNOEA SYNDROME
  3. ADEMPAS [Suspect]
     Active Substance: RIOCIGUAT
     Indication: PULMONARY HYPERTENSION
     Dosage: 0.5 MG, TID
     Route: 065
     Dates: start: 20180329, end: 201808

REACTIONS (6)
  - Intra-abdominal haemorrhage [Unknown]
  - Haematocrit decreased [None]
  - Anaemia [Unknown]
  - Haemoglobin decreased [None]
  - Dyspnoea [Recovered/Resolved]
  - Product dose omission [None]

NARRATIVE: CASE EVENT DATE: 2018
